FAERS Safety Report 19166896 (Version 1)
Quarter: 2021Q2

REPORT INFORMATION
  Report Type: Other
  Country: AT (occurrence: AT)
  Receive Date: 20210421
  Receipt Date: 20210421
  Transmission Date: 20210717
  Serious: Yes (Hospitalization)
  Sender: FDA-Public Use
  Company Number: AT-CELLTRION INC.-2021AT005283

PATIENT

DRUGS (26)
  1. SPIOLTO RESPIMAT [Concomitant]
     Active Substance: OLODATEROL HYDROCHLORIDE\TIOTROPIUM BROMIDE MONOHYDRATE
     Dosage: ONGOING = CHECKED
  2. PANTOLOC [PANTOPRAZOLE] [Concomitant]
     Active Substance: PANTOPRAZOLE SODIUM
     Dosage: ONGOING = CHECKED
  3. SIMVASTATIN. [Concomitant]
     Active Substance: SIMVASTATIN
     Dosage: ONGOING = CHECKED
  4. PACLITAXEL. [Suspect]
     Active Substance: PACLITAXEL
     Indication: BREAST CANCER
     Dosage: 151.26 MG EVERY WEEK
     Route: 042
     Dates: start: 20191014, end: 20191014
  5. ENTEROBENE [Concomitant]
     Indication: DIARRHOEA
     Dosage: ONGOING = CHECKED
     Dates: start: 20191015
  6. APREDNISLON [Concomitant]
     Active Substance: PREDNISOLONE
     Dosage: ONGOING = CHECKED
  7. DAXAS [Concomitant]
     Active Substance: ROFLUMILAST
     Dosage: ONGOING = CHECKED
  8. PERTUZUMAB. [Suspect]
     Active Substance: PERTUZUMAB
     Indication: BREAST CANCER
     Dosage: 840 MG EVERY 3 WEEKS (MOST RECENT DOSE PRIOR TO THE EVENT: 06 NOV 2019)
     Route: 042
     Dates: start: 20191014
  9. PASPERTIN [METOCLOPRAMIDE HYDROCHLORIDE] [Concomitant]
     Active Substance: METOCLOPRAMIDE HYDROCHLORIDE
     Dosage: ONGOING = CHECKED
     Dates: start: 20191015
  10. DEXAMETHASON [DEXAMETHASONE] [Concomitant]
     Active Substance: DEXAMETHASONE
     Dosage: ONGOING = CHECKED
     Dates: start: 20191021
  11. NOVALGIN (METAMIZOLE SODIUM) [Concomitant]
     Active Substance: METAMIZOLE SODIUM
     Dosage: ONGOING = CHECKED
     Dates: start: 20191015
  12. MOLAXOLE [Concomitant]
     Active Substance: POLYETHYLENE GLYCOL 3350\POTASSIUM CHLORIDE\SODIUM BICARBONATE\SODIUM CHLORIDE
     Dosage: ONGOING = CHECKED
     Dates: start: 20191015
  13. PASSEDAN [Concomitant]
     Dosage: ONGOING = CHECKED
     Dates: start: 20191010
  14. BEROTEC [Concomitant]
     Active Substance: FENOTEROL HYDROBROMIDE
     Dosage: ONGOING = CHECKED
  15. EFECTIN [Concomitant]
     Active Substance: VENLAFAXINE HYDROCHLORIDE
     Dosage: ONGOING = CHECKED
  16. CONCOR [Concomitant]
     Active Substance: BISOPROLOL FUMARATE
     Dosage: ONGOING = CHECKED
  17. ACEMIN [LISINOPRIL] [Concomitant]
     Active Substance: LISINOPRIL
     Dosage: ONGOING = CHECKED
  18. TRITTICO [Concomitant]
     Active Substance: TRAZODONE HYDROCHLORIDE
     Dosage: ONGOING = CHECKED
  19. MOLAXOLE [Concomitant]
     Active Substance: POLYETHYLENE GLYCOL 3350\POTASSIUM CHLORIDE\SODIUM BICARBONATE\SODIUM CHLORIDE
     Dosage: ONGOING = CHECKED
     Dates: start: 20191015
  20. ULSAL [Concomitant]
     Active Substance: RANITIDINE HYDROCHLORIDE
     Dosage: ONGOING = CHECKED
     Dates: start: 20191014
  21. TRASTUZUMAB (UNKNOWN) [Suspect]
     Active Substance: TRASTUZUMAB
     Indication: BREAST CANCER
     Dosage: 704 MG EVERY 3 WEEKS
     Route: 041
     Dates: start: 20191014, end: 20191014
  22. VITAMINS WITH MINERALS [Concomitant]
     Active Substance: MINERALS\VITAMINS
     Dosage: ONGOING = CHECKED
  23. ALVESCO [Concomitant]
     Active Substance: CICLESONIDE
     Dosage: ONGOING = CHECKED
  24. DILTIAZEM. [Concomitant]
     Active Substance: DILTIAZEM
     Dosage: ONGOING = CHECKED
  25. KYTRIL [Concomitant]
     Active Substance: GRANISETRON HYDROCHLORIDE
     Dosage: ONGOING = CHECKED
     Dates: start: 20191014
  26. FENISTIL [Concomitant]
     Active Substance: DIMETHINDENE
     Dosage: ONGOING = CHECKED
     Dates: start: 20191014

REACTIONS (2)
  - C-reactive protein increased [Recovered/Resolved]
  - Overdose [Unknown]

NARRATIVE: CASE EVENT DATE: 20191014
